FAERS Safety Report 5020281-3 (Version None)
Quarter: 2006Q2

REPORT INFORMATION
  Report Type: 
  Country: None (occurrence: None)
  Receive Date: 20060602
  Receipt Date: 20060519
  Transmission Date: 20061013
  Serious: Yes (Hospitalization, Disabling)
  Sender: FDA-Public Use
  Company Number: HU200603007044

PATIENT
  Age: 63 Year
  Sex: Female

DRUGS (6)
  1. HUMAN INSULIN (RDNA ORIGIN)NPH (HUMAN INSULIN (RDNA ORIGIN)NPH [Suspect]
     Indication: DIABETES MELLITUS
     Dosage: 32 IU, DAILY (1/D), SUBCUTANEOUS
     Route: 058
     Dates: start: 19900101
  2. HUMAN INSULIN (RDNA ORIGIN) NPH (HUMAN INSULIN (RDNA ORIGIN) NPH UNKNO [Suspect]
     Indication: DIABETES MELLITUS
     Dosage: 31 1U, DAILY (1/D), SUBCUTANEOUS
     Route: 058
     Dates: start: 19900101
  3. HP ERGO, BURGUNDY/CLEAR (HUMAPEN ERGO, BURGUNDY/CLEAR) PEN, REUSABLE [Concomitant]
  4. METFORMIN [Concomitant]
  5. DOXIUM /YUG/(CALCIUM DOBESILATE) [Concomitant]
  6. ISOSORBIDE MONONITRATE [Concomitant]

REACTIONS (8)
  - BLINDNESS [None]
  - CYST [None]
  - EYE OPERATION [None]
  - GLAUCOMA [None]
  - LASER THERAPY [None]
  - NEPHRECTOMY [None]
  - NEPHROLITHIASIS [None]
  - TUMOUR INVASION [None]
